FAERS Safety Report 24054123 (Version 1)
Quarter: 2024Q3

REPORT INFORMATION
  Report Type: Spontaneous
  Country: US (occurrence: US)
  Receive Date: 20240705
  Receipt Date: 20240705
  Transmission Date: 20241017
  Serious: Yes (Other)
  Sender: Unknown Manufacturer
  Company Number: US-862174955-ML2024-03720

PATIENT
  Age: 79 Year
  Sex: Female

DRUGS (2)
  1. APIXABAN [Suspect]
     Active Substance: APIXABAN
     Indication: Atrial fibrillation
     Dosage: APIXABAN 5 MG BID
     Route: 048
  2. APIXABAN [Suspect]
     Active Substance: APIXABAN

REACTIONS (2)
  - Anticoagulation drug level above therapeutic [Unknown]
  - Haematuria [Unknown]
